FAERS Safety Report 9443600 (Version 1)
Quarter: 2013Q3

REPORT INFORMATION
  Report Type: Spontaneous
  Country: JP (occurrence: JP)
  Receive Date: 20130806
  Receipt Date: 20130806
  Transmission Date: 20140515
  Serious: Yes (Other)
  Sender: FDA-Public Use
  Company Number: PHHY2013JP083703

PATIENT
  Age: 66 Year
  Sex: Male

DRUGS (3)
  1. VOLTAREN [Suspect]
     Dosage: UNK UKN, PRN
     Route: 054
  2. BFLUID [Concomitant]
  3. ANTIBIOTICS [Concomitant]

REACTIONS (3)
  - Haemorrhage [Unknown]
  - International normalised ratio increased [Unknown]
  - Prothrombin time prolonged [Unknown]
